FAERS Safety Report 4366727-5 (Version None)
Quarter: 2004Q2

REPORT INFORMATION
  Report Type: 
  Country: None (occurrence: None)
  Receive Date: 20040527
  Receipt Date: 20030130
  Transmission Date: 20050107
  Serious: Yes (Hospitalization, Disabling, Other)
  Sender: FDA-Public Use
  Company Number: US-MERCK-0301USA03184

PATIENT
  Age: 94 Year
  Sex: Female
  Weight: 60 kg

DRUGS (14)
  1. ALBUTEROL [Concomitant]
     Route: 055
  2. ASPIRIN [Suspect]
     Route: 048
     Dates: end: 20011023
  3. CIPROFLOXACIN [Concomitant]
     Indication: URINARY TRACT INFECTION
     Route: 065
  4. CIPROFLOXACIN [Concomitant]
     Indication: CYSTITIS
     Route: 065
  5. HYZAAR [Concomitant]
     Route: 048
  6. DYAZIDE [Concomitant]
     Route: 065
  7. ISOSORBIDE [Concomitant]
     Route: 065
  8. ATIVAN [Concomitant]
     Route: 048
  9. NITROGLYCERIN [Concomitant]
     Indication: CHEST PAIN
     Route: 065
  10. OXYBUTYNIN [Concomitant]
     Route: 048
  11. PROPRANOLOL HYDROCHLORIDE [Concomitant]
     Route: 065
  12. QUININE [Concomitant]
     Indication: MUSCLE CRAMP
     Route: 065
  13. VIOXX [Suspect]
     Indication: OSTEOARTHRITIS
     Route: 048
     Dates: start: 20000101, end: 20011023
  14. VIOXX [Suspect]
     Indication: GASTROOESOPHAGEAL REFLUX DISEASE
     Route: 048
     Dates: start: 20000101, end: 20011023

REACTIONS (23)
  - ANAEMIA [None]
  - ASTHENIA [None]
  - ATHEROSCLEROSIS [None]
  - BLOOD PRESSURE FLUCTUATION [None]
  - BRONCHITIS [None]
  - CHEST PAIN [None]
  - COLON CANCER [None]
  - DEAFNESS [None]
  - DYSPNOEA [None]
  - EMOTIONAL DISTRESS [None]
  - FIBROMYALGIA [None]
  - FLUID RETENTION [None]
  - GALLBLADDER DISORDER [None]
  - GASTRIC ULCER HAEMORRHAGE [None]
  - HAEMODYNAMIC INSTABILITY [None]
  - HYPERTENSION [None]
  - INJURY [None]
  - MYOCARDIAL INFARCTION [None]
  - OEDEMA [None]
  - OESOPHAGEAL DISORDER [None]
  - RHEUMATIC FEVER [None]
  - SINUS DISORDER [None]
  - WEIGHT DECREASED [None]
